FAERS Safety Report 16768362 (Version 18)
Quarter: 2021Q4

REPORT INFORMATION
  Report Type: Report from Study
  Country: CA (occurrence: CA)
  Receive Date: 20190903
  Receipt Date: 20211102
  Transmission Date: 20220303
  Serious: Yes (Hospitalization, Other)
  Sender: FDA-Public Use
  Company Number: PHHY2015CA116216

PATIENT
  Age: 68 Year
  Sex: Male

DRUGS (13)
  1. SANDOSTATIN LAR DEPOT [Suspect]
     Active Substance: OCTREOTIDE ACETATE
     Indication: Anaemia
     Dosage: 20 MG, QMO (ONCE A MONTH)
     Route: 030
     Dates: start: 20150528
  2. SANDOSTATIN LAR DEPOT [Suspect]
     Active Substance: OCTREOTIDE ACETATE
     Indication: Gastrointestinal angiodysplasia
  3. SANDOSTATIN LAR DEPOT [Suspect]
     Active Substance: OCTREOTIDE ACETATE
  4. GLYCOPYRRONIUM\INDACATEROL [Concomitant]
     Active Substance: GLYCOPYRRONIUM\INDACATEROL
     Indication: Product used for unknown indication
     Dosage: 1 DF (50 MCG /110 MCG), QD
     Route: 055
  5. JAMP VITA 3B [Concomitant]
     Indication: Product used for unknown indication
     Dosage: QD
     Route: 048
  6. PREGABALIN [Concomitant]
     Active Substance: PREGABALIN
     Indication: Product used for unknown indication
     Dosage: 75 MG, BID
     Route: 048
  7. ASPIRIN [Concomitant]
     Active Substance: ASPIRIN
     Indication: Product used for unknown indication
     Dosage: 80 MG, QD (EC)
     Route: 048
  8. JAMP ATORVASTATIN [Concomitant]
     Indication: Product used for unknown indication
     Dosage: 40 MG, QD
     Route: 048
  9. FERROUS SULFATE [Concomitant]
     Active Substance: FERROUS SULFATE
     Indication: Product used for unknown indication
     Dosage: 300 MG, BID
     Route: 048
  10. TAMSULOSIN HYDROCHLORIDE [Concomitant]
     Active Substance: TAMSULOSIN HYDROCHLORIDE
     Indication: Product used for unknown indication
     Dosage: 0.4 MG, QD
     Route: 048
  11. JAMP FOLIC ACID [Concomitant]
     Indication: Product used for unknown indication
     Dosage: 5 MG, QD
     Route: 048
  12. AMLODIPINE [Concomitant]
     Active Substance: AMLODIPINE BESYLATE
     Indication: Product used for unknown indication
     Dosage: UNK
     Route: 065
  13. LORAZEPAM [Concomitant]
     Active Substance: LORAZEPAM
     Indication: Product used for unknown indication
     Dosage: UNK
     Route: 065

REACTIONS (20)
  - Arrhythmia [Unknown]
  - Chest pain [Unknown]
  - Pneumonia [Unknown]
  - Coronary artery disease [Recovering/Resolving]
  - Pleural effusion [Unknown]
  - Oxygen saturation decreased [Unknown]
  - Dyspnoea [Recovering/Resolving]
  - Blood pressure increased [Unknown]
  - Mobility decreased [Unknown]
  - Blood pressure systolic increased [Unknown]
  - Blood pressure decreased [Unknown]
  - Tympanic membrane perforation [Unknown]
  - Cardiac disorder [Unknown]
  - Lung disorder [Unknown]
  - Faeces discoloured [Unknown]
  - Abdominal distension [Unknown]
  - Abdominal pain [Recovered/Resolved]
  - Headache [Unknown]
  - Injection site pain [Recovered/Resolved]
  - Product use in unapproved indication [Unknown]

NARRATIVE: CASE EVENT DATE: 20151201
